FAERS Safety Report 5523618-1 (Version None)
Quarter: 2007Q4

REPORT INFORMATION
  Report Type: 
  Country: None (occurrence: None)
  Receive Date: 20071121
  Receipt Date: 20071115
  Transmission Date: 20080405
  Serious: Yes (Other)
  Sender: FDA-Public Use
  Company Number: US-ASTRAZENECA-2007UW26581

PATIENT
  Age: 68 Year
  Sex: Female
  Weight: 66.7 kg

DRUGS (4)
  1. ARIMIDEX [Suspect]
     Indication: BREAST CANCER
     Route: 048
  2. CALCIUM W/VITAMIN D [Concomitant]
  3. GLUCOSAMINE [Concomitant]
  4. ASCORBIC ACID [Concomitant]

REACTIONS (4)
  - ARTHRALGIA [None]
  - RECTOCELE [None]
  - VULVOVAGINAL DRYNESS [None]
  - WEIGHT INCREASED [None]
